FAERS Safety Report 19869529 (Version 3)
Quarter: 2023Q1

REPORT INFORMATION
  Report Type: Spontaneous
  Country: FR (occurrence: FR)
  Receive Date: 20210923
  Receipt Date: 20230206
  Transmission Date: 20230418
  Serious: Yes (Hospitalization, Other)
  Sender: FDA-Public Use
  Company Number: FR-ASTRAZENECA-2019SF03241

PATIENT
  Age: 759 Month
  Sex: Female

DRUGS (14)
  1. CARBOPLATIN [Suspect]
     Active Substance: CARBOPLATIN
     Indication: Ovarian cancer
     Dosage: 750 MILLIGRAM (AUC)
     Route: 042
     Dates: start: 20190705, end: 20190705
  2. CARBOPLATIN [Suspect]
     Active Substance: CARBOPLATIN
     Dosage: 430 MILLIGRAM (AUC)
     Route: 042
     Dates: start: 20190805, end: 20190805
  3. PACLITAXEL [Suspect]
     Active Substance: PACLITAXEL
     Indication: Ovarian cancer
     Dosage: 175 MILLIGRAM/SQ. METER
     Route: 042
     Dates: start: 20190705, end: 20190705
  4. DURVALUMAB [Suspect]
     Active Substance: DURVALUMAB
     Indication: Ovarian cancer
     Dosage: UNK
     Route: 042
  5. OLAPARIB [Suspect]
     Active Substance: OLAPARIB
     Indication: Ovarian cancer
     Dosage: UNK
     Route: 048
  6. CHLORIDE ION [Concomitant]
     Active Substance: CHLORIDE ION
     Indication: Hypokalaemia
     Dosage: 1800 MILLIGRAM, ONCE A DAY
     Route: 048
  7. IRBESARTAN [Concomitant]
     Active Substance: IRBESARTAN
     Indication: Hypertension
     Dosage: 150 MILLIGRAM, ONCE A DAY
     Route: 048
  8. LOVENOX [Concomitant]
     Active Substance: ENOXAPARIN SODIUM
     Indication: Anticoagulant therapy
     Dosage: UNK, ONCE A DAY
     Route: 058
     Dates: start: 20190514
  9. MAGNESIUM [Concomitant]
     Active Substance: MAGNESIUM
     Indication: Vascular graft
     Dosage: 100 MILLIGRAM, ONCE A DAY
     Route: 048
  10. MEPREDNISONE [Concomitant]
     Active Substance: MEPREDNISONE
     Indication: Chemotherapy
     Dosage: 120 MILLIGRAM,3 WEEKS
     Route: 042
     Dates: start: 20190705
  11. ONDANSETRON [Concomitant]
     Active Substance: ONDANSETRON
     Indication: Chemotherapy
     Dosage: 8 MILLIGRAM,3WEEKS
     Route: 042
     Dates: start: 20190705
  12. ACETAMINOPHEN [Concomitant]
     Active Substance: ACETAMINOPHEN
     Indication: Pain
     Dosage: 1 GRAM, 3 TIMES A DAY
     Route: 048
     Dates: start: 20190716
  13. POLARAMINE [Concomitant]
     Active Substance: DEXCHLORPHENIRAMINE MALEATE
     Indication: Chemotherapy
     Dosage: 5 MILLIGRAM ONCE TOTAL
     Route: 042
     Dates: start: 20190705
  14. POTASSIUM [Concomitant]
     Active Substance: POTASSIUM
     Indication: Hypokalaemia
     Dosage: UNK
     Route: 048

REACTIONS (4)
  - Neuropathy peripheral [Recovered/Resolved]
  - Pancytopenia [Recovered/Resolved]
  - Diarrhoea [Recovered/Resolved]
  - Asthenia [Recovered/Resolved]

NARRATIVE: CASE EVENT DATE: 20190705
